FAERS Safety Report 9282140 (Version 1)
Quarter: 2013Q2

REPORT INFORMATION
  Report Type: Spontaneous
  Country: US (occurrence: None)
  Receive Date: 20130508
  Receipt Date: 20130508
  Transmission Date: 20140414
  Serious: Yes (Other)
  Sender: FDA-Public Use
  Company Number: None

PATIENT
  Age: 72 Year
  Sex: Male

DRUGS (1)
  1. ZELBORAF [Suspect]
     Dosage: 2-240MG PILLS-2 IN AM, 2 IN PM,DAILY, ORAL.
     Dates: start: 20130409

REACTIONS (6)
  - Abdominal pain upper [None]
  - Pyrexia [None]
  - Arthralgia [None]
  - Local swelling [None]
  - Rash [None]
  - Urticaria [None]
